FAERS Safety Report 23900124 (Version 3)
Quarter: 2024Q4

REPORT INFORMATION
  Report Type: Spontaneous
  Country: US (occurrence: US)
  Receive Date: 20240526
  Receipt Date: 20241203
  Transmission Date: 20250115
  Serious: No
  Sender: ROCHE
  Company Number: US-ROCHE-3331502

PATIENT
  Age: 32 Year
  Sex: Female
  Weight: 73.84 kg

DRUGS (1)
  1. OCREVUS [Suspect]
     Active Substance: OCRELIZUMAB
     Indication: Relapsing-remitting multiple sclerosis
     Dosage: DATE OF LAST OCREVUS DOSE DATE:12/DEC/2022
     Route: 042
     Dates: start: 20190813

REACTIONS (1)
  - Maternal exposure before pregnancy [Unknown]
